FAERS Safety Report 21404773 (Version 2)
Quarter: 2022Q4

REPORT INFORMATION
  Report Type: Spontaneous
  Country: JP (occurrence: JP)
  Receive Date: 20221003
  Receipt Date: 20221012
  Transmission Date: 20230113
  Serious: Yes (Other)
  Sender: FDA-Public Use
  Company Number: JP-SA-2022SA396173

PATIENT
  Age: 63 Year
  Sex: Female

DRUGS (2)
  1. DOCETAXEL [Suspect]
     Active Substance: DOCETAXEL
     Indication: Lip and/or oral cavity cancer
     Dosage: UNK
     Route: 013
  2. NEDAPLATIN [Suspect]
     Active Substance: NEDAPLATIN
     Indication: Lip and/or oral cavity cancer
     Dosage: UNK
     Route: 013

REACTIONS (4)
  - Pneumatosis intestinalis [Recovering/Resolving]
  - Vomiting [Recovering/Resolving]
  - Abdominal symptom [Recovering/Resolving]
  - Incorrect route of product administration [Unknown]
